FAERS Safety Report 24685694 (Version 1)
Quarter: 2024Q4

REPORT INFORMATION
  Report Type: Spontaneous
  Country: US (occurrence: None)
  Receive Date: 20241127
  Receipt Date: 20241127
  Transmission Date: 20250115
  Serious: Yes (Hospitalization)
  Sender: Public
  Company Number: None

PATIENT
  Sex: Female

DRUGS (11)
  1. TASIGNA [Suspect]
     Active Substance: NILOTINIB
     Indication: Acute myeloid leukaemia
     Dosage: FREQUENCY : TWICE A DAY;?
     Route: 048
     Dates: start: 20240727
  2. CLOTRIM/BETA CRE 1-0.05% [Concomitant]
  3. DICYCLOMINE CAP 10MG [Concomitant]
  4. ESTRACE VAG CRE 0.01% [Concomitant]
  5. LOSARTAN POT TAB 25MG [Concomitant]
  6. METOPROL TAR TAB 50MG [Concomitant]
  7. NITROFURANTN CAP 100MG [Concomitant]
  8. OMEPRAZOLE TAB 20MG [Concomitant]
  9. ONDANSETRON [Concomitant]
     Active Substance: ONDANSETRON
  10. ONDANSETRON [Concomitant]
     Active Substance: ONDANSETRON
  11. SENNA-S TAB 8.6-50MG [Concomitant]

REACTIONS (2)
  - Hospitalisation [None]
  - Therapy interrupted [None]
